FAERS Safety Report 17666296 (Version 3)
Quarter: 2020Q3

REPORT INFORMATION
  Report Type: Spontaneous
  Country: DO (occurrence: DO)
  Receive Date: 20200414
  Receipt Date: 20200701
  Transmission Date: 20201102
  Serious: Yes (Disabling, Other)
  Sender: FDA-Public Use
  Company Number: DO-PFIZER INC-2020116150

PATIENT
  Age: 44 Year
  Sex: Female
  Weight: 65.9 kg

DRUGS (4)
  1. XELJANZ [Suspect]
     Active Substance: TOFACITINIB CITRATE
     Indication: RHEUMATOID ARTHRITIS
     Dosage: 1 DF, 2X/DAY (ONE TABLET EVERY 12 HOURS)
     Route: 048
     Dates: start: 20180925
  2. BRONAL [PREDNISOLONE] [Concomitant]
     Dosage: UNK
     Dates: start: 2017
  3. METHOTREXATE [METHOTREXATE SODIUM] [Concomitant]
     Active Substance: METHOTREXATE SODIUM
     Dosage: UNK
     Dates: start: 2017
  4. ACIDO FOLICO [FOLIC ACID] [Concomitant]
     Active Substance: FOLIC ACID
     Dosage: UNK
     Dates: start: 2017

REACTIONS (4)
  - Adverse food reaction [Unknown]
  - Arthralgia [Unknown]
  - Arthritis [Unknown]
  - Loss of personal independence in daily activities [Unknown]
